FAERS Safety Report 8142691 (Version 6)
Quarter: 2013Q3

REPORT INFORMATION
  Report Type: Spontaneous
  Country: US (occurrence: US)
  Receive Date: 20110919
  Receipt Date: 20130711
  Transmission Date: 20140515
  Serious: Yes (Hospitalization)
  Sender: FDA-Public Use
  Company Number: US-GLAXOSMITHKLINE-A0933740A

PATIENT
  Age: 71 Year
  Sex: Female
  Weight: 68.6 kg

DRUGS (1)
  1. AVANDIA [Suspect]
     Indication: DIABETES MELLITUS
     Dosage: 4MG PER DAY
     Route: 048
     Dates: start: 20061005, end: 20100301

REACTIONS (4)
  - Myocardial infarction [Unknown]
  - Coronary artery occlusion [Unknown]
  - Cardiac failure congestive [Unknown]
  - Acute coronary syndrome [Unknown]
